FAERS Safety Report 7058381-9 (Version None)
Quarter: 2010Q4

REPORT INFORMATION
  Report Type: 
  Country: None (occurrence: None)
  Receive Date: 20101022
  Receipt Date: 20101006
  Transmission Date: 20110411
  Serious: No
  Sender: FDA-Public Use
  Company Number: US-PFIZER INC-2010106796

PATIENT
  Sex: Male
  Weight: 97.5 kg

DRUGS (5)
  1. VIAGRA [Suspect]
     Indication: ERECTILE DYSFUNCTION
     Dosage: 25 MG, AS NEEDED
     Route: 048
     Dates: start: 20040301
  2. VIAGRA [Suspect]
     Dosage: 50 MG, AS NEEDED EVERY 24 HOURS
     Route: 048
  3. SIMVASTATIN [Concomitant]
     Indication: BLOOD CHOLESTEROL INCREASED
     Dosage: UNK
  4. AMITRIPTYLINE [Concomitant]
     Indication: HEADACHE
     Dosage: UNK
  5. ACETYLSALICYLIC ACID [Concomitant]
     Indication: PALLIATIVE CARE
     Dosage: UNK

REACTIONS (2)
  - DRUG INEFFECTIVE [None]
  - FLUSHING [None]
